FAERS Safety Report 9084547 (Version 2)
Quarter: 2013Q1

REPORT INFORMATION
  Report Type: Spontaneous
  Country: JP (occurrence: JP)
  Receive Date: 20130131
  Receipt Date: 20130221
  Transmission Date: 20140127
  Serious: No
  Sender: FDA-Public Use
  Company Number: JP-JNJFOC-20130111502

PATIENT
  Age: 6 Decade
  Sex: Male

DRUGS (10)
  1. DUROTEP MT [Suspect]
     Indication: CANCER PAIN
     Dosage: 12.5 UG/HR, 2.8 SHEETS PER 2 DAYS
     Route: 062
  2. DUROTEP MT [Suspect]
     Indication: CANCER PAIN
     Dosage: 12.5 UG/HR, 2.6 SHEETS PER 2 DAYS
     Route: 062
  3. DUROTEP MT [Suspect]
     Indication: CANCER PAIN
     Dosage: 12.5 UG/HR, 2.4 SHEETS PER 2 DAYS
     Route: 062
  4. DUROTEP MT [Suspect]
     Indication: CANCER PAIN
     Route: 062
  5. DUROTEP MT [Suspect]
     Indication: CANCER PAIN
     Route: 062
  6. DUROTEP MT [Suspect]
     Indication: CANCER PAIN
     Dosage: 12.5 UG/HR, 1/3 SHEET FOR THREE DAYS
     Route: 062
  7. DOCETAXEL [Suspect]
     Indication: PRODUCT USED FOR UNKNOWN INDICATION
     Route: 065
  8. HYPEN [Concomitant]
     Route: 048
  9. NOVAMIN [Concomitant]
     Route: 048
  10. ANPEC [Concomitant]
     Route: 065

REACTIONS (6)
  - Intentional drug misuse [Unknown]
  - Nausea [Unknown]
  - Incorrect drug administration duration [Unknown]
  - Drug ineffective [Unknown]
  - Fatigue [Unknown]
  - Somnolence [Unknown]
